FAERS Safety Report 6581916-7 (Version None)
Quarter: 2010Q1

REPORT INFORMATION
  Report Type: 
  Country: None (occurrence: None)
  Receive Date: 20100215
  Receipt Date: 20100205
  Transmission Date: 20100710
  Serious: Yes (Other)
  Sender: FDA-Public Use
  Company Number: US-ABBOTT-10P-163-0624462-00

PATIENT
  Sex: Female

DRUGS (12)
  1. NIASPAN [Suspect]
     Indication: BLOOD TRIGLYCERIDES INCREASED
     Dates: start: 20100108, end: 20100121
  2. NIASPAN [Suspect]
     Indication: LOW DENSITY LIPOPROTEIN INCREASED
  3. NIASPAN [Suspect]
     Indication: BLOOD CHOLESTEROL INCREASED
  4. LOVASTATIN [Suspect]
     Indication: DRUG USE FOR UNKNOWN INDICATION
  5. LOVASTATIN [Concomitant]
  6. DARVOCET [Concomitant]
     Indication: DRUG USE FOR UNKNOWN INDICATION
  7. MALIC ACID [Concomitant]
     Indication: DRUG USE FOR UNKNOWN INDICATION
  8. VIT D [Concomitant]
     Indication: DRUG USE FOR UNKNOWN INDICATION
  9. LOVAZA [Concomitant]
     Indication: DRUG USE FOR UNKNOWN INDICATION
  10. RANITIDINE [Concomitant]
     Indication: DRUG USE FOR UNKNOWN INDICATION
  11. OMEPRAZOLE [Concomitant]
     Indication: DRUG USE FOR UNKNOWN INDICATION
  12. ASPIRIN [Concomitant]
     Indication: DRUG USE FOR UNKNOWN INDICATION

REACTIONS (10)
  - DYSPNOEA [None]
  - FACIAL PARESIS [None]
  - FEELING ABNORMAL [None]
  - HOT FLUSH [None]
  - HYPERSENSITIVITY [None]
  - NERVOUSNESS [None]
  - OESOPHAGEAL OEDEMA [None]
  - PARAESTHESIA [None]
  - SWOLLEN TONGUE [None]
  - VISION BLURRED [None]
